FAERS Safety Report 4455564-9 (Version None)
Quarter: 2004Q3

REPORT INFORMATION
  Report Type: 
  Country: None (occurrence: None)
  Receive Date: 20040917
  Receipt Date: 20040827
  Transmission Date: 20050211
  Serious: Yes (Other)
  Sender: FDA-Public Use
  Company Number: JP_040804109

PATIENT
  Age: 72 Year
  Sex: Female
  Weight: 52 kg

DRUGS (8)
  1. EVISTA [Suspect]
     Indication: OSTEOPOROSIS
     Dosage: 60 MG/1 DAY
     Dates: start: 20040528, end: 20040630
  2. PAXIL [Concomitant]
  3. SOLANAX (ALPRAZOLAM DUM) [Concomitant]
  4. METHYCOBAL (MECOBALAMIN) [Concomitant]
  5. AMOBAN (ZOPICLONE) [Concomitant]
  6. DESYREL [Concomitant]
  7. MEILAX (ETHYL LOFLAZEPATE) [Concomitant]
  8. OMEPRAZOLE [Concomitant]

REACTIONS (4)
  - DIZZINESS [None]
  - FALL [None]
  - FEAR [None]
  - JOINT INJURY [None]
